FAERS Safety Report 19702969 (Version 1)
Quarter: 2021Q3

REPORT INFORMATION
  Report Type: Spontaneous
  Country: FR (occurrence: FR)
  Receive Date: 20210816
  Receipt Date: 20210816
  Transmission Date: 20211014
  Serious: Yes (Hospitalization)
  Sender: FDA-Public Use
  Company Number: FR-AMGEN-FRASP2021122735

PATIENT
  Age: 78 Year
  Sex: Male
  Weight: 66 kg

DRUGS (12)
  1. COMIRNATY [Suspect]
     Active Substance: TOZINAMERAN
     Indication: PLASMA CELL MYELOMA
     Dosage: 2 DOSAGE FORM
     Route: 030
     Dates: start: 20210204, end: 20210302
  2. ZOPICLONE [Concomitant]
     Active Substance: ZOPICLONE
  3. MIRTAZAPINE. [Concomitant]
     Active Substance: MIRTAZAPINE
  4. FINASTERIDE. [Concomitant]
     Active Substance: FINASTERIDE
  5. VALACICLOVIR [Concomitant]
     Active Substance: VALACYCLOVIR HYDROCHLORIDE
  6. OXAZEPAM. [Concomitant]
     Active Substance: OXAZEPAM
  7. ARANESP [Concomitant]
     Active Substance: DARBEPOETIN ALFA
  8. KYPROLIS [Suspect]
     Active Substance: CARFILZOMIB
     Indication: PLASMA CELL MYELOMA
     Dosage: 36.4 MILLIGRAM, CYCLICAL
     Route: 041
     Dates: start: 20210325, end: 20210326
  9. ARTISIAL [Concomitant]
     Active Substance: CALCIUM CHLORIDE\MAGNESIUM CHLORIDE\POTASSIUM CHLORIDE\POTASSIUM PHOSPHATE, DIBASIC\POTASSIUM PHOSPHATE, MONOBASIC\SODIUM CHLORIDE
  10. BACTRIM [Concomitant]
     Active Substance: SULFAMETHOXAZOLE\TRIMETHOPRIM
  11. TAMSULOSINE [TAMSULOSIN] [Concomitant]
     Active Substance: TAMSULOSIN
  12. DARZALEX [Suspect]
     Active Substance: DARATUMUMAB
     Indication: PLASMA CELL MYELOMA
     Dosage: 1800 MILLIGRAM, CYCLICAL
     Route: 058
     Dates: start: 20210325, end: 20210325

REACTIONS (1)
  - Vaccination failure [Recovered/Resolved]

NARRATIVE: CASE EVENT DATE: 20210329
